FAERS Safety Report 25407295 (Version 4)
Quarter: 2025Q4

REPORT INFORMATION
  Report Type: Report from Study
  Country: US (occurrence: US)
  Receive Date: 20250606
  Receipt Date: 20251219
  Transmission Date: 20260118
  Serious: Yes (Death, Other)
  Sender: JOHNSON AND JOHNSON
  Company Number: US-JNJFOC-20250603844

PATIENT
  Age: 69 Year
  Sex: Male

DRUGS (1)
  1. CILTACABTAGENE AUTOLEUCEL [Suspect]
     Active Substance: CILTACABTAGENE AUTOLEUCEL
     Indication: Plasma cell myeloma
     Dosage: TOTAL NUMBER OF CELLS ADMINISTERED: 46.9; TOTAL CELLS EXPONENT VALUE: 6

REACTIONS (6)
  - Neoplasm malignant [Fatal]
  - T-cell lymphoma [Not Recovered/Not Resolved]
  - Cytokine release syndrome [Unknown]
  - Thrombocytopenia [Unknown]
  - Non-Hodgkin^s lymphoma [Unknown]
  - Cytomegalovirus infection reactivation [Unknown]

NARRATIVE: CASE EVENT DATE: 20240827
